FAERS Safety Report 9220024 (Version 1)
Quarter: 2013Q1

REPORT INFORMATION
  Report Type: Spontaneous
  Country: US (occurrence: None)
  Receive Date: 20120831
  Receipt Date: 20120831
  Transmission Date: 20140127
  Serious: No
  Sender: FDA-Public Use
  Company Number: 1000030620

PATIENT
  Age: 79 Year
  Sex: Female

DRUGS (5)
  1. DALIRESP [Suspect]
     Indication: CHRONIC OBSTRUCTIVE PULMONARY DISEASE
     Route: 048
     Dates: start: 201204
  2. PREDNISONE(PREDNISONE)(PREDNISONE) [Concomitant]
  3. NORCO(VICODIN)(VICODIN) [Concomitant]
  4. SYNTHROID(LEVOTHYROXINE SODIUM)(LEVOTHYROXINE SODIUM) [Concomitant]
  5. LASIX (FUROSEMIDE)(FUROSEMIDE) [Concomitant]

REACTIONS (6)
  - Nausea [None]
  - Vomiting [None]
  - Retching [None]
  - Back pain [None]
  - Weight decreased [None]
  - Decreased appetite [None]
